FAERS Safety Report 24098161 (Version 1)
Quarter: 2024Q3

REPORT INFORMATION
  Report Type: Spontaneous
  Country: CN (occurrence: None)
  Receive Date: 20240716
  Receipt Date: 20240716
  Transmission Date: 20241017
  Serious: Yes (Hospitalization, Other)
  Sender: ASTRAZENECA
  Company Number: 2024A158221

PATIENT
  Age: 27047 Day
  Sex: Female
  Weight: 52 kg

DRUGS (2)
  1. OLAPARIB [Suspect]
     Active Substance: OLAPARIB
     Indication: Fallopian tube cancer
     Route: 048
     Dates: start: 20240315, end: 20240603
  2. THROMBOPOIETIN [Concomitant]
     Active Substance: THROMBOPOIETIN
     Dosage: 15000U SUBCUTANEOUS INJECTION ONCE A DAY
     Route: 058

REACTIONS (6)
  - Platelet count decreased [Not Recovered/Not Resolved]
  - Gastrointestinal disorder [Not Recovered/Not Resolved]
  - Decreased appetite [Not Recovered/Not Resolved]
  - Abdominal distension [Not Recovered/Not Resolved]
  - Abdominal pain [Not Recovered/Not Resolved]
  - Nausea [Not Recovered/Not Resolved]

NARRATIVE: CASE EVENT DATE: 20240604
